FAERS Safety Report 21159239 (Version 1)
Quarter: 2022Q3

REPORT INFORMATION
  Report Type: Spontaneous
  Country: US (occurrence: US)
  Receive Date: 20220802
  Receipt Date: 20220802
  Transmission Date: 20221027
  Serious: Yes (Death, Other)
  Sender: FDA-Public Use
  Company Number: US-AMGEN-USASP2022126606

PATIENT
  Age: 3 Year
  Sex: Male

DRUGS (2)
  1. RITUXIMAB [Suspect]
     Active Substance: RITUXIMAB
     Indication: Transplant rejection
     Dosage: UNK
     Route: 065
  2. ECULIZUMAB [Concomitant]
     Active Substance: ECULIZUMAB

REACTIONS (3)
  - Viral sepsis [Fatal]
  - Drug effective for unapproved indication [Unknown]
  - Off label use [Unknown]
